FAERS Safety Report 9264188 (Version 2)
Quarter: 2013Q3

REPORT INFORMATION
  Report Type: Spontaneous
  Country: CA (occurrence: CA)
  Receive Date: 20130430
  Receipt Date: 20130918
  Transmission Date: 20140515
  Serious: Yes (Other)
  Sender: FDA-Public Use
  Company Number: CA-PFIZER INC-2013131177

PATIENT
  Age: 67 Year
  Sex: Female

DRUGS (1)
  1. TECTA [Suspect]
     Indication: GASTRITIS
     Dosage: 40 MG, 1X/DAY
     Route: 065
     Dates: start: 20120602, end: 201210

REACTIONS (6)
  - Cough [Recovered/Resolved]
  - Decreased interest [Recovered/Resolved]
  - Depression [Recovered/Resolved]
  - Feeling of despair [Recovered/Resolved]
  - Nausea [Recovered/Resolved]
  - Depressed mood [Unknown]
